FAERS Safety Report 4313428-5 (Version None)
Quarter: 2004Q1

REPORT INFORMATION
  Report Type: 
  Country: None (occurrence: None)
  Receive Date: 20040304
  Receipt Date: 20040217
  Transmission Date: 20041129
  Serious: Yes (Hospitalization)
  Sender: FDA-Public Use
  Company Number: US_0402100902

PATIENT
  Age: 62 Year
  Sex: Male
  Weight: 130 kg

DRUGS (3)
  1. HUMALOG [Suspect]
     Dates: start: 20010101
  2. HUMULIN N [Suspect]
     Dosage: 106 U/DAY
     Dates: start: 19940101
  3. HUMULIN R [Suspect]
     Dates: start: 19940101, end: 20010101

REACTIONS (3)
  - BLOOD GLUCOSE INCREASED [None]
  - FROSTBITE [None]
  - NEUROPATHY [None]
